FAERS Safety Report 6146319-8 (Version None)
Quarter: 2009Q2

REPORT INFORMATION
  Report Type: 
  Country: None (occurrence: None)
  Receive Date: 20090403
  Receipt Date: 20090322
  Transmission Date: 20091009
  Serious: Yes (Death)
  Sender: FDA-Public Use
  Company Number: PIR# 0903022

PATIENT
  Sex: Female

DRUGS (1)
  1. STERILE WATER FOR INJECTION [Suspect]

REACTIONS (3)
  - HAEMOLYSIS [None]
  - RENAL FAILURE ACUTE [None]
  - WRONG DRUG ADMINISTERED [None]
